FAERS Safety Report 10345615 (Version 2)
Quarter: 2014Q3

REPORT INFORMATION
  Report Type: Spontaneous
  Country: US (occurrence: US)
  Receive Date: 20140728
  Receipt Date: 20140728
  Transmission Date: 20150326
  Serious: Yes (Hospitalization, Disabling, Other)
  Sender: FDA-Public Use
  Company Number: US-009507513-2010SP007781

PATIENT
  Sex: Female
  Weight: 79.38 kg

DRUGS (5)
  1. [COMPOSITION UNSPECIFIED] [Concomitant]
     Active Substance: UNSPECIFIED INGREDIENT
     Dosage: ACAI BERRY SUPPLEMENT
     Dates: start: 200901, end: 200903
  2. ZYRTEC [Concomitant]
     Active Substance: CETIRIZINE HYDROCHLORIDE
     Indication: HYPERSENSITIVITY
     Dates: start: 200901, end: 200903
  3. AMBIEN [Suspect]
     Active Substance: ZOLPIDEM TARTRATE
     Indication: TACHYCARDIA
     Dates: start: 200903
  4. VITAMINS (UNSPECIFIED) [Concomitant]
     Active Substance: VITAMINS
     Dates: start: 200901, end: 200903
  5. NUVARING [Suspect]
     Active Substance: ETHINYL ESTRADIOL\ETONOGESTREL
     Indication: MENSTRUAL DISORDER
     Dosage: UNK UNK, QM
     Route: 067
     Dates: start: 20061004, end: 20090324

REACTIONS (18)
  - Tachycardia [Not Recovered/Not Resolved]
  - Deep vein thrombosis [Recovered/Resolved]
  - Seborrhoeic keratosis [Unknown]
  - Gallbladder disorder [Not Recovered/Not Resolved]
  - Basal cell carcinoma [Unknown]
  - Phlebitis [Unknown]
  - Melanocytic naevus [Unknown]
  - Spinal osteoarthritis [Unknown]
  - Blood triglycerides abnormal [Recovering/Resolving]
  - Insomnia [Not Recovered/Not Resolved]
  - Pulmonary embolism [Recovered/Resolved]
  - Acne [Unknown]
  - Off label use [Unknown]
  - Skin disorder [Unknown]
  - Weight increased [Unknown]
  - Breast cyst [Unknown]
  - Chest discomfort [Recovered/Resolved]
  - Abdominal distension [Unknown]

NARRATIVE: CASE EVENT DATE: 2006
